FAERS Safety Report 7693492-6 (Version None)
Quarter: 2011Q3

REPORT INFORMATION
  Report Type: 
  Country: None (occurrence: None)
  Receive Date: 20110819
  Receipt Date: 20110819
  Transmission Date: 20111222
  Serious: Yes (Life-Threatening)
  Sender: FDA-Public Use
  Company Number: None

PATIENT
  Sex: Male
  Weight: 743.43 kg

DRUGS (1)
  1. LISINOPRIL [Suspect]

REACTIONS (1)
  - ANGIOEDEMA [None]
